FAERS Safety Report 5401830-X (Version None)
Quarter: 2007Q3

REPORT INFORMATION
  Report Type: 
  Country: None (occurrence: None)
  Receive Date: 20070726
  Receipt Date: 20070710
  Transmission Date: 20080115
  Serious: Yes (Other)
  Sender: FDA-Public Use
  Company Number: DSA_30288_2007

PATIENT
  Age: 39 Year
  Sex: Male
  Weight: 90 kg

DRUGS (3)
  1. RENIVACE (RENIVACE - ENALAPRIL MALEATE) 5 MG [Suspect]
     Indication: HYPERTENSION
     Dosage: (5 MG QD ORAL)
     Route: 048
     Dates: start: 20070608, end: 20070614
  2. HYDROCHLOROTHIAZIDE W/LOSARTAN (PREMINENT - LOSARTAN POTASSIUM/HYDROCH [Suspect]
     Indication: HYPERTENSION
     Dosage: (DF ORAL)
     Route: 048
     Dates: start: 20070615
  3. RIZE [Concomitant]

REACTIONS (1)
  - CHEST PAIN [None]
